FAERS Safety Report 9983453 (Version 2)
Quarter: 2014Q1

REPORT INFORMATION
  Report Type: Spontaneous
  Country: US (occurrence: US)
  Receive Date: 20140307
  Receipt Date: 20140327
  Transmission Date: 20141002
  Serious: Yes (Other)
  Sender: FDA-Public Use
  Company Number: US-BAYER-2014-033768

PATIENT
  Age: 29 Year
  Sex: Female

DRUGS (1)
  1. MIRENA [Suspect]
     Dosage: 20 MCG/24HR, CONT
     Route: 015
     Dates: start: 200909

REACTIONS (11)
  - Ovarian cystectomy [None]
  - Pain [None]
  - Infection [None]
  - Abdominal pain lower [None]
  - Vulvovaginal discomfort [None]
  - Urinary retention [None]
  - Pelvic pain [None]
  - Uterine prolapse [None]
  - Hysterectomy [None]
  - Device dislocation [None]
  - Injury [None]
